FAERS Safety Report 11637542 (Version 1)
Quarter: 2015Q4

REPORT INFORMATION
  Report Type: Report from Study
  Country: JP (occurrence: JP)
  Receive Date: 20151016
  Receipt Date: 20151016
  Transmission Date: 20160304
  Serious: Yes (Hospitalization, Other)
  Sender: FDA-Public Use
  Company Number: JP-ASTELLAS-2011JP002379AA

PATIENT
  Age: 36 Year
  Sex: Female
  Weight: 55 kg

DRUGS (25)
  1. RINDERON                           /00008501/ [Suspect]
     Active Substance: BETAMETHASONE
     Route: 048
     Dates: start: 20100424, end: 20100909
  2. RINDERON                           /00008501/ [Suspect]
     Active Substance: BETAMETHASONE
     Route: 048
     Dates: start: 20110128, end: 20110414
  3. VALTREX [Concomitant]
     Active Substance: VALACYCLOVIR HYDROCHLORIDE
     Indication: HERPES ZOSTER
     Dosage: UNK UNK, UNKNOWN FREQ.
     Route: 065
  4. TACROLIMUS. [Suspect]
     Active Substance: TACROLIMUS
     Route: 048
     Dates: start: 20100701, end: 20101202
  5. TACROLIMUS. [Suspect]
     Active Substance: TACROLIMUS
     Route: 048
     Dates: start: 20111125, end: 20120321
  6. RINDERON                           /00008501/ [Suspect]
     Active Substance: BETAMETHASONE
     Dosage: ALTERNATE DOSES OF 1 AND 0.75 MG DAILY
     Route: 048
     Dates: start: 20100910, end: 20110127
  7. RINDERON                           /00008501/ [Suspect]
     Active Substance: BETAMETHASONE
     Dosage: ALTERNATE DOSES OF 0.5 AND 0.25 MG DAILY
     Route: 048
     Dates: start: 20110930
  8. ARASENA A [Concomitant]
     Active Substance: VIDARABINE
     Indication: HERPES ZOSTER
     Dosage: UNK UNK, UNKNOWN FREQ.
     Route: 065
  9. TACROLIMUS. [Suspect]
     Active Substance: TACROLIMUS
     Route: 048
     Dates: start: 20101203, end: 20111124
  10. TACROLIMUS. [Suspect]
     Active Substance: TACROLIMUS
     Route: 048
     Dates: start: 20120412, end: 201404
  11. RINDERON                           /00008501/ [Suspect]
     Active Substance: BETAMETHASONE
     Dosage: 0.75 MG, ONCE DAILY
     Route: 048
     Dates: start: 20110415, end: 20110609
  12. PREDNISOLONE. [Concomitant]
     Active Substance: PREDNISOLONE
     Indication: LUPUS NEPHRITIS
     Route: 048
     Dates: end: 20100408
  13. URSO [Concomitant]
     Active Substance: URSODIOL
     Indication: SYSTEMIC LUPUS ERYTHEMATOSUS
     Route: 048
     Dates: end: 20131118
  14. NEORAL [Suspect]
     Active Substance: CYCLOSPORINE
     Indication: LUPUS NEPHRITIS
     Route: 048
     Dates: start: 20100408, end: 20100701
  15. BAYASPIRIN [Concomitant]
     Active Substance: ASPIRIN
     Indication: ANTIPHOSPHOLIPID SYNDROME
     Route: 048
  16. TAKEPRON [Concomitant]
     Active Substance: LANSOPRAZOLE
     Indication: PROPHYLAXIS
     Route: 048
  17. RINDERON                           /00008501/ [Suspect]
     Active Substance: BETAMETHASONE
     Dosage: 0.5 MG, ONCE DAILY
     Route: 048
     Dates: start: 20110805, end: 20110929
  18. MUCOSTA [Concomitant]
     Active Substance: REBAMIPIDE
     Indication: PROPHYLAXIS
     Route: 048
  19. ANTEBATE [Concomitant]
     Active Substance: BETAMETHASONE DIPROPIONATE
     Indication: SYSTEMIC LUPUS ERYTHEMATOSUS
     Route: 065
     Dates: start: 20100301, end: 20100408
  20. TACROLIMUS. [Suspect]
     Active Substance: TACROLIMUS
     Dates: start: 201404
  21. RINDERON                           /00008501/ [Suspect]
     Active Substance: BETAMETHASONE
     Indication: LUPUS NEPHRITIS
     Route: 048
     Dates: start: 20100409, end: 20100423
  22. ONEALFA [Concomitant]
     Active Substance: ALFACALCIDOL
     Indication: PROPHYLAXIS
     Route: 048
  23. TACROLIMUS. [Suspect]
     Active Substance: TACROLIMUS
     Indication: LUPUS NEPHRITIS
     Route: 048
     Dates: start: 20100301, end: 20100408
  24. RINDERON                           /00008501/ [Suspect]
     Active Substance: BETAMETHASONE
     Dosage: ALTERNATE DOSES OF 0.75 AND 0.5 MG DAILY
     Route: 048
     Dates: start: 20110610, end: 20110804
  25. PROTOPIC [Concomitant]
     Active Substance: TACROLIMUS
     Indication: SYSTEMIC LUPUS ERYTHEMATOSUS
     Route: 062
     Dates: start: 20100301, end: 20100408

REACTIONS (3)
  - Liver disorder [Recovering/Resolving]
  - Herpes zoster [Recovered/Resolved]
  - Arterial occlusive disease [Recovered/Resolved]

NARRATIVE: CASE EVENT DATE: 20100701
